FAERS Safety Report 7267074-4 (Version None)
Quarter: 2011Q1

REPORT INFORMATION
  Report Type: 
  Country: None (occurrence: None)
  Receive Date: 20110201
  Receipt Date: 20110119
  Transmission Date: 20110831
  Serious: Yes (Other)
  Sender: FDA-Public Use
  Company Number: PHHY2010US86505

PATIENT
  Sex: Female

DRUGS (12)
  1. ASPIRIN [Concomitant]
  2. EXELON [Suspect]
     Indication: DEMENTIA
     Dosage: 4.6 MG, UNK
     Route: 062
     Dates: start: 20101101
  3. VITAMIN B-12 [Concomitant]
  4. SERTRALINE [Concomitant]
  5. TEMAZEPAM [Concomitant]
  6. EXELON [Suspect]
     Dosage: 9.5 MG, UNK
     Route: 062
  7. CRESTOR [Concomitant]
  8. ARICEPT [Suspect]
  9. VITAMIN D [Concomitant]
  10. WARFARIN [Concomitant]
  11. ATENOLOL [Concomitant]
  12. COUMADIN [Concomitant]

REACTIONS (4)
  - BALANCE DISORDER [None]
  - MOVEMENT DISORDER [None]
  - CEREBRAL HAEMORRHAGE [None]
  - AMNESIA [None]
